FAERS Safety Report 13156662 (Version 1)
Quarter: 2017Q1

REPORT INFORMATION
  Report Type: Spontaneous
  Country: None (occurrence: US)
  Receive Date: 20170126
  Receipt Date: 20170126
  Transmission Date: 20170428
  Serious: No
  Sender: FDA-Public Use
  Company Number: US-PRINSTON PHARMACEUTICAL INC.-2016PRN00157

PATIENT
  Sex: Female

DRUGS (2)
  1. RISPERIDONE (^YELLOW TABS^) [Suspect]
     Active Substance: RISPERIDONE
     Dosage: UNK
     Dates: start: 2014
  2. RISPERIDONE. [Suspect]
     Active Substance: RISPERIDONE
     Dosage: UNK
     Dates: start: 2014

REACTIONS (6)
  - Overweight [Not Recovered/Not Resolved]
  - Product substitution issue [Not Recovered/Not Resolved]
  - Drug ineffective [Not Recovered/Not Resolved]
  - Poor personal hygiene [Not Recovered/Not Resolved]
  - Anger [Not Recovered/Not Resolved]
  - Feeling jittery [Not Recovered/Not Resolved]
